FAERS Safety Report 8337178-3 (Version None)
Quarter: 2012Q2

REPORT INFORMATION
  Report Type: 
  Country: None (occurrence: None)
  Receive Date: 20120504
  Receipt Date: 20120425
  Transmission Date: 20120825
  Serious: Yes (Hospitalization, Other)
  Sender: FDA-Public Use
  Company Number: PHHY2012FR036165

PATIENT
  Sex: Male

DRUGS (12)
  1. ACETYLCYSTEINE [Suspect]
     Dosage: 1.4 MG, UNK
     Dates: start: 20120215
  2. LAMICTAL [Suspect]
     Dosage: 75 MG, BID
  3. MAXILASE [Suspect]
     Dosage: 2 G, UNK
     Dates: start: 20120215
  4. SPASFON [Suspect]
     Dosage: 1.6 MG, UNK
     Dates: start: 20120215
  5. TEGRETOL [Suspect]
     Dosage: 400 MG, BID
  6. ASPIRIN [Suspect]
     Dosage: 1 G, UNK
     Dates: start: 20120215
  7. MEBEVERINE [Suspect]
     Dosage: 3.6 G, UNK
     Dates: start: 20120215
  8. TEGRETOL [Suspect]
     Dosage: 10 G, UNK
     Dates: start: 20120215
  9. ACETAMINOPHEN [Suspect]
     Dosage: 23 G, UNK
     Dates: start: 20120215
  10. LAMICTAL [Suspect]
     Dosage: 1 G, UNK
     Dates: start: 20120215
  11. URBANYL [Suspect]
     Dosage: 150 MG, UNK
  12. IBUPROFEN [Suspect]
     Dosage: 8 G, UNK
     Dates: start: 20120215

REACTIONS (10)
  - POISONING DELIBERATE [None]
  - DRUG LEVEL INCREASED [None]
  - SUICIDAL IDEATION [None]
  - DEPRESSED LEVEL OF CONSCIOUSNESS [None]
  - AGITATION [None]
  - ELECTROCARDIOGRAM QRS COMPLEX PROLONGED [None]
  - VOMITING [None]
  - CONFUSIONAL STATE [None]
  - BLOOD LACTIC ACID INCREASED [None]
  - MAJOR DEPRESSION [None]
